FAERS Safety Report 7974856-X (Version None)
Quarter: 2011Q4

REPORT INFORMATION
  Report Type: 
  Country: None (occurrence: None)
  Receive Date: 20111213
  Receipt Date: 20111206
  Transmission Date: 20120403
  Serious: Yes (Other)
  Sender: FDA-Public Use
  Company Number: FR-GILEAD-2011-0047772

PATIENT
  Sex: Male

DRUGS (4)
  1. ISENTRESS [Suspect]
     Dosage: 2 DF, BID
     Route: 048
  2. METHADON HCL ELX [Suspect]
     Dosage: 90 MG, QD
     Route: 048
  3. VIREAD [Suspect]
     Indication: HIV INFECTION
     Dosage: 1 DF, UNK
     Route: 048
  4. INTELENCE [Suspect]
     Dosage: 200 MG, UNK
     Route: 048

REACTIONS (1)
  - OSTEOPOROSIS [None]
